FAERS Safety Report 10178562 (Version 1)
Quarter: 2014Q2

REPORT INFORMATION
  Report Type: Spontaneous
  Country: US (occurrence: None)
  Receive Date: 20140516
  Receipt Date: 20140516
  Transmission Date: 20141212
  Serious: Yes (Hospitalization)
  Sender: FDA-Public Use
  Company Number: None

PATIENT
  Age: 90 Year
  Sex: Male
  Weight: 72.8 kg

DRUGS (3)
  1. AXITINIB [Suspect]
     Indication: COLORECTAL CANCER METASTATIC
     Route: 048
     Dates: start: 20140430, end: 20140503
  2. COUMADIN [Concomitant]
  3. METOPROLOL [Concomitant]

REACTIONS (5)
  - Ventricular fibrillation [None]
  - Torsade de pointes [None]
  - Cardio-respiratory arrest [None]
  - Refusal of treatment by patient [None]
  - Troponin increased [None]
